FAERS Safety Report 15262333 (Version 1)
Quarter: 2018Q3

REPORT INFORMATION
  Report Type: Spontaneous
  Country: US (occurrence: US)
  Receive Date: 20180720
  Receipt Date: 20180720
  Transmission Date: 20181010
  Serious: Yes (Life-Threatening, Hospitalization)
  Sender: FDA-Public Use
  Company Number: None

PATIENT
  Age: 73 Year
  Sex: Male
  Weight: 92.99 kg

DRUGS (3)
  1. FLUTICASONE PROPIONATE NASAL SPRAY, 50MCG MG [Suspect]
     Active Substance: FLUTICASONE PROPIONATE
     Indication: HYPERSENSITIVITY
  2. DIAMOX SEQUELS [Concomitant]
     Active Substance: ACETAZOLAMIDE
  3. ELLAQUIS [Concomitant]

REACTIONS (6)
  - Nausea [None]
  - Optic nerve disorder [None]
  - Diplopia [None]
  - Recalled product [None]
  - Superior sagittal sinus thrombosis [None]
  - Headache [None]

NARRATIVE: CASE EVENT DATE: 20180308
